FAERS Safety Report 6772165-8 (Version None)
Quarter: 2010Q2

REPORT INFORMATION
  Report Type: 
  Country: None (occurrence: None)
  Receive Date: 20100616
  Receipt Date: 20060913
  Transmission Date: 20101027
  Serious: Yes (Other)
  Sender: FDA-Public Use
  Company Number: PHHY2006GB02601

PATIENT

DRUGS (1)
  1. GLEEVEC [Suspect]
     Dosage: FOETAL DRUG EXPOSURE VIA FATHER

REACTIONS (2)
  - ANENCEPHALY [None]
  - DRUG EXPOSURE DURING PREGNANCY [None]
